FAERS Safety Report 9780029 (Version 2)
Quarter: 2013Q4

REPORT INFORMATION
  Report Type: Report from Study
  Country: US (occurrence: US)
  Receive Date: 20131223
  Receipt Date: 20131223
  Transmission Date: 20140711
  Serious: Yes (Hospitalization, Other)
  Sender: FDA-Public Use
  Company Number: US-ABBVIE-13P-163-1176995-00

PATIENT
  Sex: Female

DRUGS (3)
  1. HUMIRA [Suspect]
     Indication: CROHN^S DISEASE
     Dates: start: 2009, end: 201307
  2. HUMIRA [Suspect]
     Dates: start: 2013, end: 201308
  3. HUMIRA [Suspect]
     Dates: start: 20131127

REACTIONS (5)
  - Large intestinal stenosis [Recovered/Resolved]
  - Crohn^s disease [Unknown]
  - Gastrointestinal infection [Unknown]
  - Colon operation [Unknown]
  - Anal stenosis [Recovered/Resolved]
